FAERS Safety Report 21217618 (Version 1)
Quarter: 2022Q3

REPORT INFORMATION
  Report Type: Spontaneous
  Country: US (occurrence: US)
  Receive Date: 20220816
  Receipt Date: 20220816
  Transmission Date: 20221027
  Serious: No
  Sender: FDA-Public Use
  Company Number: US-KYOWAKIRIN-2022BKK012842

PATIENT

DRUGS (2)
  1. POTELIGEO [Suspect]
     Active Substance: MOGAMULIZUMAB-KPKC
     Indication: Adult T-cell lymphoma/leukaemia
     Dosage: UNK UNK, 1X/WEEK
     Route: 065
  2. RALTEGRAVIR [Suspect]
     Active Substance: RALTEGRAVIR
     Indication: Adult T-cell lymphoma/leukaemia
     Dosage: UNK UNK, 1X/WEEK
     Route: 065

REACTIONS (2)
  - Skin exfoliation [Recovered/Resolved]
  - Drug eruption [Not Recovered/Not Resolved]
